FAERS Safety Report 26045709 (Version 1)
Quarter: 2025Q4

REPORT INFORMATION
  Report Type: Spontaneous
  Country: US (occurrence: None)
  Receive Date: 20251113
  Receipt Date: 20251113
  Transmission Date: 20260117
  Serious: Yes (Hospitalization)
  Sender: FDA-CTU
  Company Number: None

PATIENT
  Age: 95 Year
  Sex: Male

DRUGS (1)
  1. LENALIDOMIDE [Suspect]
     Active Substance: LENALIDOMIDE
     Indication: Plasma cell myeloma
     Dosage: 10MG QD ORAL
     Route: 048
     Dates: start: 20250527

REACTIONS (6)
  - Constipation [None]
  - Flatulence [None]
  - Haematochezia [None]
  - Urinary retention [None]
  - Dysuria [None]
  - Nocturia [None]

NARRATIVE: CASE EVENT DATE: 20251024
